FAERS Safety Report 13854745 (Version 1)
Quarter: 2017Q3

REPORT INFORMATION
  Report Type: Spontaneous
  Country: US (occurrence: US)
  Receive Date: 20170810
  Receipt Date: 20170810
  Transmission Date: 20171127
  Serious: Yes (Other)
  Sender: FDA-Public Use
  Company Number: US-BRISTOL-MYERS SQUIBB COMPANY-BMS-2017-070160

PATIENT
  Sex: Female
  Weight: 78 kg

DRUGS (3)
  1. LOVENOX [Concomitant]
     Active Substance: ENOXAPARIN SODIUM
     Indication: THROMBOSIS
     Route: 065
  2. ELIQUIS [Suspect]
     Active Substance: APIXABAN
     Indication: DEEP VEIN THROMBOSIS
     Route: 065
  3. ELIQUIS [Suspect]
     Active Substance: APIXABAN
     Indication: PULMONARY EMBOLISM
     Dosage: 2.5 MG, BID
     Route: 048

REACTIONS (7)
  - Tremor [Unknown]
  - Gait disturbance [Unknown]
  - Paraesthesia [Unknown]
  - Abnormal behaviour [Unknown]
  - Blood pressure increased [Recovering/Resolving]
  - Dizziness [Unknown]
  - Feeling abnormal [Unknown]
